FAERS Safety Report 12552758 (Version 4)
Quarter: 2017Q2

REPORT INFORMATION
  Report Type: Spontaneous
  Country: DE (occurrence: DE)
  Receive Date: 20160713
  Receipt Date: 20170525
  Transmission Date: 20170830
  Serious: Yes (Hospitalization, Disabling, Other)
  Sender: FDA-Public Use
  Company Number: DE-B.I. PHARMACEUTICALS,INC./RIDGEFIELD-2016-BI-45574DE

PATIENT
  Age: 94 Year
  Sex: Female
  Weight: 55 kg

DRUGS (7)
  1. PRADAXA [Suspect]
     Active Substance: DABIGATRAN ETEXILATE MESYLATE
     Indication: ATRIAL FIBRILLATION
     Route: 048
  2. ASPIRIN. [Concomitant]
     Active Substance: ASPIRIN
     Indication: CORONARY ARTERY DISEASE
     Route: 048
  3. TORASEMID [Concomitant]
     Active Substance: TORSEMIDE
     Indication: CARDIAC FAILURE
     Route: 048
  4. METFORMIN [Concomitant]
     Active Substance: METFORMIN HYDROCHLORIDE
     Indication: DIABETES MELLITUS
     Route: 048
  5. PRADAXA [Suspect]
     Active Substance: DABIGATRAN ETEXILATE MESYLATE
     Indication: THROMBOSIS PROPHYLAXIS
  6. PRADAXA [Suspect]
     Active Substance: DABIGATRAN ETEXILATE MESYLATE
     Indication: ANGIOPATHY
  7. ASPIRIN. [Concomitant]
     Active Substance: ASPIRIN
     Indication: POST PROCEDURAL COMPLICATION

REACTIONS (6)
  - Thrombin time prolonged [Recovered/Resolved]
  - Ischaemic cerebral infarction [Recovered/Resolved]
  - Hemiparesis [Recovered/Resolved]
  - Affective disorder [Recovered/Resolved]
  - Ischaemic stroke [Unknown]
  - Microangiopathy [Unknown]

NARRATIVE: CASE EVENT DATE: 20160624
